FAERS Safety Report 24781089 (Version 1)
Quarter: 2024Q4

REPORT INFORMATION
  Report Type: Spontaneous
  Country: FR (occurrence: FR)
  Receive Date: 20241227
  Receipt Date: 20241227
  Transmission Date: 20250115
  Serious: Yes (Hospitalization, Other)
  Sender: BAXTER
  Company Number: None

PATIENT
  Age: 70 Year
  Sex: Female

DRUGS (2)
  1. DOXORUBICIN [Suspect]
     Active Substance: DOXORUBICIN
     Indication: Anaplastic thyroid cancer
     Dosage: (DOSAGE TEXT: 1 TREATMENT) 108 MG, 28 DAYS
     Route: 042
     Dates: start: 20241130
  2. CISPLATIN [Suspect]
     Active Substance: CISPLATIN
     Indication: Anaplastic thyroid cancer
     Dosage: (DOSAGE TEXT: 1 TREATMENT) 179 MG, 28 DAYS
     Route: 042
     Dates: start: 20241130

REACTIONS (4)
  - Inappropriate antidiuretic hormone secretion [Recovering/Resolving]
  - Hypokalaemia [Recovered/Resolved]
  - Hypomagnesaemia [Unknown]
  - Acute kidney injury [Recovering/Resolving]

NARRATIVE: CASE EVENT DATE: 20241130
